FAERS Safety Report 23146799 (Version 2)
Quarter: 2023Q4

REPORT INFORMATION
  Report Type: Other
  Country: US (occurrence: US)
  Receive Date: 20231105
  Receipt Date: 20231116
  Transmission Date: 20240109
  Serious: Yes (Other)
  Sender: FDA-Public Use
  Company Number: US-ALVOGEN-2023092499

PATIENT
  Age: 52 Year
  Sex: Male

DRUGS (1)
  1. METHOTREXATE [Suspect]
     Active Substance: METHOTREXATE
     Indication: Cardiac sarcoidosis

REACTIONS (2)
  - Chronic kidney disease [Unknown]
  - Off label use [Unknown]
